FAERS Safety Report 10244421 (Version 1)
Quarter: 2014Q1

REPORT INFORMATION
  Report Type: Spontaneous
  Country: US (occurrence: None)
  Receive Date: 20140306
  Receipt Date: 20140306
  Transmission Date: 20141002
  Serious: Yes (Hospitalization, Disabling, Other)
  Sender: FDA-Public Use
  Company Number: 163-21880-13013955

PATIENT
  Age: 72 Year
  Sex: Male

DRUGS (12)
  1. REVLIMID (LENALIDOMIDE) (25 MILLIGRAM CAPSULES) [Suspect]
     Indication: PLASMA CELL MYELOMA
     Route: 048
     Dates: start: 20121030, end: 2013
  2. ACYCLOVIR (UNKNOWN) [Concomitant]
  3. AMLODIPINE BESTLATE (AMLODIPINE BESILAT) (UNKNOWN) [Concomitant]
  4. DEXAMETHASONE (UNKNOWN) [Concomitant]
  5. FUROSEMIDE (UNKNOWN) [Concomitant]
  6. ISOSORBIDE DIMETHYL ETHER (UNKNOWN) [Concomitant]
  7. LORAZEPAM (UNKNOWN) [Concomitant]
  8. METOPROLOL TARTRATE (UNKNOWN) [Concomitant]
  9. ONDANSETRON HCL (ONDANSETRON HYDROCHLORIDE) (UNKNOWN) [Concomitant]
  10. ASPIRIN (ACETYLSALICYLIC ACID) (UNKNOWN) [Concomitant]
  11. ATIVAN (LORAZEPAM) (UNKNOWN) [Concomitant]
  12. MORPHINE (UNKNOWN) [Concomitant]

REACTIONS (4)
  - Chronic obstructive pulmonary disease [None]
  - Cardiac failure congestive [None]
  - Haemoglobin decreased [None]
  - Pneumonia [None]
